FAERS Safety Report 12141225 (Version 3)
Quarter: 2016Q2

REPORT INFORMATION
  Report Type: Spontaneous
  Country: GB (occurrence: GB)
  Receive Date: 20160303
  Receipt Date: 20160405
  Transmission Date: 20160815
  Serious: Yes (Other)
  Sender: FDA-Public Use
  Company Number: GB-PFIZER INC-2016117478

PATIENT
  Age: 26 Year
  Sex: Male
  Weight: 73 kg

DRUGS (2)
  1. CLARITHROMYCIN. [Concomitant]
     Active Substance: CLARITHROMYCIN
  2. CRIZOTINIB [Suspect]
     Active Substance: CRIZOTINIB
     Dosage: 250 MG, 2X/DAY
     Dates: start: 20160205

REACTIONS (7)
  - Dizziness [Recovered/Resolved]
  - Electrocardiogram ST-T change [Unknown]
  - Nausea [Unknown]
  - Tremor [Unknown]
  - Asthenia [Unknown]
  - Liver function test increased [Recovered/Resolved]
  - Abdominal pain [Recovered/Resolved]

NARRATIVE: CASE EVENT DATE: 201602
